FAERS Safety Report 18570836 (Version 1)
Quarter: 2020Q4

REPORT INFORMATION
  Report Type: Spontaneous
  Country: IT (occurrence: IT)
  Receive Date: 20201202
  Receipt Date: 20201202
  Transmission Date: 20210114
  Serious: Yes (Other)
  Sender: FDA-Public Use
  Company Number: IT-FRESENIUS KABI-FK202012705

PATIENT
  Age: 64 Year
  Sex: Male

DRUGS (10)
  1. OXALIPLATIN (MANUFACTURER UNKNOWN) [Suspect]
     Active Substance: OXALIPLATIN
     Indication: PANCREATIC CARCINOMA METASTATIC
     Route: 065
  2. FLUOROURACIL. [Suspect]
     Active Substance: FLUOROURACIL
     Route: 065
  3. GEMCITABINE. [Concomitant]
     Active Substance: GEMCITABINE
     Indication: METASTASES TO LIVER
     Route: 065
  4. IRINOTECAN (MANUFACTURER UNKNOWN) [Suspect]
     Active Substance: IRINOTECAN
     Indication: PANCREATIC CARCINOMA METASTATIC
     Route: 065
  5. OXALIPLATIN (MANUFACTURER UNKNOWN) [Suspect]
     Active Substance: OXALIPLATIN
     Route: 065
  6. FOLINIC ACID [Suspect]
     Active Substance: LEUCOVORIN
     Route: 065
  7. FLUOROURACIL. [Suspect]
     Active Substance: FLUOROURACIL
     Indication: PANCREATIC CARCINOMA METASTATIC
     Dosage: CONTINUOUS 44 HOURS INFUSION
     Route: 065
  8. GEMCITABINE. [Concomitant]
     Active Substance: GEMCITABINE
     Indication: METASTASES TO LUNG
  9. IRINOTECAN (MANUFACTURER UNKNOWN) [Suspect]
     Active Substance: IRINOTECAN
     Route: 065
  10. FOLINIC ACID [Suspect]
     Active Substance: LEUCOVORIN
     Indication: PANCREATIC CARCINOMA METASTATIC
     Route: 065

REACTIONS (6)
  - Diarrhoea [Unknown]
  - Fatigue [Unknown]
  - Pneumonia bacterial [Unknown]
  - Neutropenia [Unknown]
  - Anaemia [Unknown]
  - Stomatitis [Unknown]
